FAERS Safety Report 15530622 (Version 2)
Quarter: 2018Q4

REPORT INFORMATION
  Report Type: Spontaneous
  Country: US (occurrence: US)
  Receive Date: 20181018
  Receipt Date: 20181025
  Transmission Date: 20190205
  Serious: No
  Sender: FDA-Public Use
  Company Number: US-FRESENIUS KABI-FK201810748

PATIENT
  Age: 57 Year
  Sex: Female
  Weight: 100 kg

DRUGS (3)
  1. HEPARIN SODIUM INJECTION, USP [Suspect]
     Active Substance: HEPARIN SODIUM
     Indication: THROMBOSIS PROPHYLAXIS
     Route: 058
     Dates: start: 20181008, end: 20181011
  2. HEPARIN SODIUM INJECTION, USP [Suspect]
     Active Substance: HEPARIN SODIUM
     Indication: THROMBOSIS PROPHYLAXIS
     Route: 058
     Dates: start: 20180928, end: 20180928
  3. HEPARIN SODIUM INJECTION, USP [Suspect]
     Active Substance: HEPARIN SODIUM
     Dosage: AT 1537, DOSAGE INCREASED TO 7500 UNITS DUE TO BMI GREATER THAN 40.
     Route: 058
     Dates: start: 20180928, end: 20180929

REACTIONS (1)
  - Drug effect increased [Unknown]

NARRATIVE: CASE EVENT DATE: 20180929
